FAERS Safety Report 4368376-1 (Version None)
Quarter: 2004Q2

REPORT INFORMATION
  Report Type: 
  Country: None (occurrence: None)
  Receive Date: 20040528
  Receipt Date: 20040517
  Transmission Date: 20050107
  Serious: Yes (Other)
  Sender: FDA-Public Use
  Company Number: 2004213805FR

PATIENT
  Age: 75 Year
  Sex: Female
  Weight: 68 kg

DRUGS (7)
  1. AROMASIN [Suspect]
     Indication: BREAST CANCER FEMALE
     Dosage: 25 MG , QD, ORAL
     Route: 048
     Dates: start: 20020717, end: 20040404
  2. LEVOTHYROX (LEVOTHYROXINE SODIUM) [Concomitant]
  3. IDEOS [Concomitant]
  4. APROVEL (IRBESARTAN) [Concomitant]
  5. KARDEGIC [Concomitant]
  6. ENDOTELON (VITIS VINIFERA) [Concomitant]
  7. EUPHYTOSE(VALERIAN EXTRACT, PASSIFLORA EXTRACT, KOLA, PAULLINA CUPANA, [Concomitant]

REACTIONS (2)
  - DYSPNOEA [None]
  - PHLEBITIS [None]
